FAERS Safety Report 5023478-1 (Version None)
Quarter: 2006Q2

REPORT INFORMATION
  Report Type: 
  Country: None (occurrence: None)
  Receive Date: 20060612
  Receipt Date: 20060601
  Transmission Date: 20061013
  Serious: Yes (Other)
  Sender: FDA-Public Use
  Company Number: PHBS2006JP08423

PATIENT
  Age: 79 Year
  Sex: Female

DRUGS (1)
  1. AREDIA [Suspect]
     Indication: METASTASES TO BONE
     Route: 042
     Dates: end: 20060501

REACTIONS (4)
  - BONE PAIN [None]
  - HAEMORRHAGIC DIATHESIS [None]
  - OSTEONECROSIS [None]
  - TOOTH EXTRACTION [None]
